FAERS Safety Report 5255627-4 (Version None)
Quarter: 2007Q1

REPORT INFORMATION
  Report Type: 
  Country: None (occurrence: None)
  Receive Date: 20070305
  Receipt Date: 20070220
  Transmission Date: 20070707
  Serious: Yes (Other)
  Sender: FDA-Public Use
  Company Number: US-PFIZER INC-2007014089

PATIENT
  Sex: Female
  Weight: 45.4 kg

DRUGS (4)
  1. CHANTIX [Suspect]
     Indication: EX-SMOKER
     Dates: start: 20061226, end: 20070206
  2. CELEBREX [Concomitant]
  3. HUMIRA [Concomitant]
  4. KLONOPIN [Concomitant]

REACTIONS (4)
  - ABNORMAL DREAMS [None]
  - MEMORY IMPAIRMENT [None]
  - MUSCLE SPASMS [None]
  - PRURITUS [None]
